FAERS Safety Report 5690219-4 (Version None)
Quarter: 2008Q2

REPORT INFORMATION
  Report Type: 
  Country: None (occurrence: None)
  Receive Date: 20080401
  Receipt Date: 20080324
  Transmission Date: 20081010
  Serious: Yes (Hospitalization)
  Sender: FDA-Public Use
  Company Number: US-ROCHE-537088

PATIENT
  Age: 91 Year
  Sex: Female

DRUGS (7)
  1. BONIVA [Suspect]
     Indication: OSTEOPOROSIS
     Route: 048
     Dates: start: 20070601
  2. VITAMIN D [Concomitant]
  3. CALCIUM [Concomitant]
  4. GABAPENTIN [Concomitant]
     Dosage: REPORTED AS GENERIC NEURONTIN
  5. DICLOFENAC [Concomitant]
     Dosage: REPORTED AS GENERIC ^VOLTARIN^
  6. VITAMINS NOS [Concomitant]
  7. ARICEPT [Concomitant]
     Dosage: AT HS

REACTIONS (8)
  - ANAEMIA [None]
  - BLOOD CREATININE ABNORMAL [None]
  - BLOOD UREA ABNORMAL [None]
  - DIARRHOEA [None]
  - FALL [None]
  - NAUSEA [None]
  - URINARY TRACT INFECTION [None]
  - VOMITING [None]
